FAERS Safety Report 13981458 (Version 1)
Quarter: 2017Q3

REPORT INFORMATION
  Report Type: Spontaneous
  Country: US (occurrence: US)
  Receive Date: 20170916
  Receipt Date: 20170916
  Transmission Date: 20171128
  Serious: Yes (Other)
  Sender: FDA-Public Use
  Company Number: None

PATIENT
  Age: 45 Year
  Sex: Female
  Weight: 65.25 kg

DRUGS (2)
  1. SETRALINE HYDROCHLORIDE TABS 100MG [Suspect]
     Active Substance: SERTRALINE HYDROCHLORIDE
     Indication: MENOPAUSAL SYMPTOMS
     Dosage: ?          QUANTITY:1 TABLET(S);?
     Route: 048
     Dates: start: 20170907, end: 20170916
  2. SETRALINE HYDROCHLORIDE TABS 100MG [Suspect]
     Active Substance: SERTRALINE HYDROCHLORIDE
     Indication: DEPRESSION
     Dosage: ?          QUANTITY:1 TABLET(S);?
     Route: 048
     Dates: start: 20170907, end: 20170916

REACTIONS (4)
  - Product formulation issue [None]
  - Product measured potency issue [None]
  - Product substitution issue [None]
  - Withdrawal syndrome [None]

NARRATIVE: CASE EVENT DATE: 20170910
